FAERS Safety Report 19694287 (Version 1)
Quarter: 2021Q3

REPORT INFORMATION
  Report Type: Spontaneous
  Country: PL (occurrence: PL)
  Receive Date: 20210812
  Receipt Date: 20210812
  Transmission Date: 20211014
  Serious: Yes (Other)
  Sender: FDA-Public Use
  Company Number: PL-MYLANLABS-2021M1049659

PATIENT
  Age: 31 Year
  Sex: Male

DRUGS (1)
  1. METHOTREXATE. [Suspect]
     Active Substance: METHOTREXATE
     Indication: CROHN^S DISEASE
     Dosage: 25 MG, QW
     Route: 058
     Dates: start: 201612

REACTIONS (3)
  - Crohn^s disease [Unknown]
  - Off label use [Unknown]
  - Product use in unapproved indication [Unknown]
